FAERS Safety Report 15371181 (Version 1)
Quarter: 2018Q3

REPORT INFORMATION
  Report Type: Spontaneous
  Country: FR (occurrence: FR)
  Receive Date: 20180911
  Receipt Date: 20180911
  Transmission Date: 20181010
  Serious: Yes (Other)
  Sender: FDA-Public Use
  Company Number: FR-SA-2018SA246536

PATIENT
  Age: 37 Year
  Sex: Female
  Weight: 63 kg

DRUGS (6)
  1. RIFATER [Suspect]
     Active Substance: ISONIAZID\PYRAZINAMIDE\RIFAMPIN
     Indication: PULMONARY TUBERCULOSIS
     Dosage: 6 DF, QD
     Route: 048
     Dates: start: 20180612, end: 20180630
  2. DEXAMBUTOL [Suspect]
     Active Substance: ETHAMBUTOL HYDROCHLORIDE
     Indication: PULMONARY TUBERCULOSIS
     Route: 048
     Dates: start: 20180612, end: 20180702
  3. PRINCI B [CYANOCOBALAMIN;PYRIDOXINE HYDROCHLORIDE;THIAMINE MONONITRATE [Concomitant]
     Indication: VITAMIN SUPPLEMENTATION
     Route: 048
     Dates: start: 20180612
  4. PIRILENE [Concomitant]
     Active Substance: PYRAZINAMIDE
     Indication: PULMONARY TUBERCULOSIS
     Route: 048
     Dates: start: 20180710
  5. RIMIFON [Suspect]
     Active Substance: ISONIAZID
     Indication: PULMONARY TUBERCULOSIS
     Route: 048
     Dates: start: 20180714
  6. ANSATIPINE [Concomitant]
     Active Substance: RIFABUTIN
     Indication: PULMONARY TUBERCULOSIS
     Route: 048
     Dates: start: 20180719

REACTIONS (2)
  - Neuropathy peripheral [Unknown]
  - Burning sensation [Unknown]

NARRATIVE: CASE EVENT DATE: 20180627
